FAERS Safety Report 8818307 (Version 2)
Quarter: 2013Q4

REPORT INFORMATION
  Report Type: Spontaneous
  Country: US (occurrence: US)
  Receive Date: 20121001
  Receipt Date: 20131101
  Transmission Date: 20140711
  Serious: No
  Sender: FDA-Public Use
  Company Number: US-009507513-1207USA006622

PATIENT
  Sex: Male

DRUGS (1)
  1. TINACTIN SPRAY POWDER [Suspect]
     Indication: TINEA PEDIS
     Dosage: UNK
     Route: 061
     Dates: start: 2012

REACTIONS (2)
  - Blister [Recovering/Resolving]
  - Drug effect decreased [Unknown]
